FAERS Safety Report 8202848-4 (Version None)
Quarter: 2012Q1

REPORT INFORMATION
  Report Type: 
  Country: None (occurrence: None)
  Receive Date: 20120312
  Receipt Date: 20120312
  Transmission Date: 20120608
  Serious: No
  Sender: FDA-Public Use
  Company Number: None

PATIENT
  Sex: Male
  Weight: 29.483 kg

DRUGS (6)
  1. ZYPREXA [Suspect]
     Indication: AGGRESSION
     Dosage: HALF TABLET
     Route: 048
     Dates: start: 20120221, end: 20120306
  2. ZYPREXA [Concomitant]
     Dosage: HALF TABLET
     Route: 048
     Dates: start: 20120221, end: 20120306
  3. ADDERALL 5 [Concomitant]
  4. CLONIDINE [Concomitant]
  5. PROZAC [Concomitant]
  6. DEPAKOTE [Concomitant]

REACTIONS (2)
  - RESTLESSNESS [None]
  - DYSKINESIA [None]
